FAERS Safety Report 13781576 (Version 1)
Quarter: 2017Q3

REPORT INFORMATION
  Report Type: Spontaneous
  Country: US (occurrence: US)
  Receive Date: 20170724
  Receipt Date: 20170724
  Transmission Date: 20171127
  Serious: Yes (Death, Other)
  Sender: FDA-Public Use
  Company Number: US-SUN PHARMACEUTICAL INDUSTRIES LTD-2017US-138713

PATIENT
  Age: 55 Year
  Sex: Female

DRUGS (2)
  1. TEMOZOLOMIDE. [Suspect]
     Active Substance: TEMOZOLOMIDE
     Indication: GLIOBLASTOMA MULTIFORME
     Dosage: UNK
     Route: 065
     Dates: start: 201303, end: 201406
  2. CARBOXYAMIDOTRIAZOLE OROTATE [Suspect]
     Active Substance: CARBOXYAMIDOTRIAZOLE OROTATE
     Indication: GLIOBLASTOMA MULTIFORME
     Dosage: UNK
     Route: 065
     Dates: start: 201303, end: 201406

REACTIONS (5)
  - DNA mismatch repair protein gene mutation [Unknown]
  - Disease recurrence [Unknown]
  - Speech disorder [Unknown]
  - Gene mutation [Unknown]
  - Drug resistance [Unknown]

NARRATIVE: CASE EVENT DATE: 201406
